FAERS Safety Report 11043856 (Version 1)
Quarter: 2015Q2

REPORT INFORMATION
  Report Type: Spontaneous
  Country: US (occurrence: None)
  Receive Date: 20150415
  Receipt Date: 20150415
  Transmission Date: 20150821
  Serious: Yes (Death)
  Sender: FDA-Public Use
  Company Number: 2015SA045310

PATIENT
  Age: 18 Month
  Sex: Male
  Weight: 12.02 kg

DRUGS (1)
  1. UNISOM SLEEPTABS [Suspect]
     Active Substance: DOXYLAMINE SUCCINATE

REACTIONS (4)
  - Toxicity to various agents [None]
  - Accidental overdose [None]
  - Accidental exposure to product by child [None]
  - Respiratory arrest [None]
